FAERS Safety Report 9656714 (Version 1)
Quarter: 2013Q4

REPORT INFORMATION
  Report Type: Spontaneous
  Country: CH (occurrence: CH)
  Receive Date: 20131030
  Receipt Date: 20131030
  Transmission Date: 20140711
  Serious: Yes (Death)
  Sender: FDA-Public Use
  Company Number: CH-BAYER-2013-129092

PATIENT
  Age: 80 Year
  Sex: Male

DRUGS (4)
  1. ASPIRIN CARDIO [Suspect]
     Dosage: 100 MG, QD
     Route: 048
     Dates: end: 20130814
  2. CONCOR [Concomitant]
     Dosage: 2.5 MG, QD
     Route: 048
     Dates: end: 20130814
  3. TRIATEC [Concomitant]
     Dosage: 5 MG, QD
     Route: 048
     Dates: end: 20130814
  4. PANTOZOL [Concomitant]
     Dosage: 20 MG, QD
     Route: 048
     Dates: end: 20130814

REACTIONS (1)
  - Subarachnoid haemorrhage [Fatal]
